FAERS Safety Report 15134619 (Version 1)
Quarter: 2018Q3

REPORT INFORMATION
  Report Type: Spontaneous
  Country: US (occurrence: US)
  Receive Date: 20180712
  Receipt Date: 20180712
  Transmission Date: 20181010
  Serious: No
  Sender: FDA-Public Use
  Company Number: US-VIIV HEALTHCARE LIMITED-US2018120349

PATIENT
  Sex: Male

DRUGS (4)
  1. IBUPROFEN. [Concomitant]
     Active Substance: IBUPROFEN
  2. TRULANCE [Suspect]
     Active Substance: PLECANATIDE
     Indication: CONSTIPATION
     Dosage: 1 DF, PRN
     Route: 048
  3. JULUCA [Suspect]
     Active Substance: DOLUTEGRAVIR SODIUM\RILPIVIRINE HYDROCHLORIDE
     Indication: HIV INFECTION
     Dosage: UNK UNK, QD
     Route: 048
     Dates: start: 20180524
  4. ACYCLOVIR. [Concomitant]
     Active Substance: ACYCLOVIR

REACTIONS (16)
  - Abdominal distension [Not Recovered/Not Resolved]
  - Formication [Unknown]
  - Headache [Recovering/Resolving]
  - Depression [Not Recovered/Not Resolved]
  - Constipation [Unknown]
  - Flatulence [Unknown]
  - Diarrhoea [Unknown]
  - Rash pruritic [Recovering/Resolving]
  - Migraine [Unknown]
  - Abdominal discomfort [Unknown]
  - Eructation [Not Recovered/Not Resolved]
  - Stress [Not Recovered/Not Resolved]
  - Anxiety [Not Recovered/Not Resolved]
  - Agitation [Not Recovered/Not Resolved]
  - Back injury [Unknown]
  - Abdominal pain [Unknown]

NARRATIVE: CASE EVENT DATE: 201806
